FAERS Safety Report 24234249 (Version 1)
Quarter: 2024Q3

REPORT INFORMATION
  Report Type: Spontaneous
  Country: FR (occurrence: None)
  Receive Date: 20240821
  Receipt Date: 20240821
  Transmission Date: 20241017
  Serious: Yes (Other)
  Sender: ASTRAZENECA
  Company Number: 2024A184241

PATIENT
  Age: 74 Year
  Sex: Male
  Weight: 82 kg

DRUGS (8)
  1. EVUSHELD [Suspect]
     Active Substance: CILGAVIMAB\TIXAGEVIMAB
     Indication: COVID-19 prophylaxis
     Dosage: 150+1501.0DF ONCE/SINGLE ADMINISTRATION
     Dates: start: 20220113, end: 20220113
  2. LERCANIDIPINE [Concomitant]
     Active Substance: LERCANIDIPINE
  3. VALACYCLOVIR HYDROCHLORIDE [Concomitant]
     Active Substance: VALACYCLOVIR HYDROCHLORIDE
  4. CANDESARTAN CILEXETIL [Concomitant]
     Active Substance: CANDESARTAN CILEXETIL
  5. DARZALEX [Concomitant]
     Active Substance: DARATUMUMAB
  6. BACTRIM [Concomitant]
     Active Substance: SULFAMETHOXAZOLE\TRIMETHOPRIM
  7. KYPROLIS [Concomitant]
     Active Substance: CARFILZOMIB
  8. DEXAMETHASONE [Concomitant]
     Active Substance: DEXAMETHASONE

REACTIONS (1)
  - Retinal vein occlusion [Recovering/Resolving]

NARRATIVE: CASE EVENT DATE: 20220126
